FAERS Safety Report 20572685 (Version 3)
Quarter: 2023Q1

REPORT INFORMATION
  Report Type: Spontaneous
  Country: CN (occurrence: CN)
  Receive Date: 20220309
  Receipt Date: 20230126
  Transmission Date: 20230417
  Serious: Yes (Other)
  Sender: FDA-Public Use
  Company Number: CN-BAYER-2022A033609

PATIENT
  Age: 38 Year
  Sex: Female

DRUGS (4)
  1. YAZ [Suspect]
     Active Substance: DROSPIRENONE\ETHINYL ESTRADIOL
     Dosage: UNK
     Route: 048
     Dates: start: 2020, end: 2021
  2. COVID-19 VACCINE NOS [Suspect]
     Active Substance: COVID-19 VACCINE NOS
     Dosage: UNK
     Dates: start: 2021, end: 2022
  3. OMEPRAZOLE [Concomitant]
     Active Substance: OMEPRAZOLE
     Indication: Antacid therapy
     Route: 048
  4. VOCINTI [Concomitant]
     Dosage: UNK
     Dates: start: 2022

REACTIONS (16)
  - Retinal haemorrhage [Recovered/Resolved]
  - Gastric ulcer [None]
  - Corneal bleeding [None]
  - Conjunctival haemorrhage [None]
  - Pain [None]
  - Eye swelling [Not Recovered/Not Resolved]
  - Abdominal pain upper [None]
  - Somnolence [None]
  - Dizziness [None]
  - Headache [Not Recovered/Not Resolved]
  - Depression [None]
  - Diarrhoea [None]
  - Asthenia [None]
  - Insomnia [None]
  - Back pain [Recovered/Resolved]
  - Swelling face [None]

NARRATIVE: CASE EVENT DATE: 20210101
